FAERS Safety Report 8417080-9 (Version None)
Quarter: 2012Q2

REPORT INFORMATION
  Report Type: 
  Country: None (occurrence: None)
  Receive Date: 20120606
  Receipt Date: 20120529
  Transmission Date: 20120825
  Serious: Yes (Hospitalization)
  Sender: FDA-Public Use
  Company Number: US-ELI_LILLY_AND_COMPANY-US201204001617

PATIENT
  Sex: Female
  Weight: 38 kg

DRUGS (8)
  1. OMEPRAZOLE [Concomitant]
     Dosage: 40 MG, QD
  2. METOPROLOL SUCCINATE [Concomitant]
     Dosage: 25 MG, QD
  3. ENALAPRIL MALEATE [Concomitant]
     Dosage: 2.5 MG, QD
  4. MAG-OX [Concomitant]
     Dosage: 241.3 MG, QD
  5. FOLIC ACID [Concomitant]
     Dosage: 1 MG, QD
  6. IPRATROPIUM BROMIDE [Concomitant]
     Dosage: 2 DF, QD
  7. FORTEO [Suspect]
     Dosage: 20 UG, QD
     Route: 058
  8. ASPIRIN [Concomitant]
     Dosage: 81 MG, QD

REACTIONS (2)
  - HOSPITALISATION [None]
  - CLOSTRIDIUM DIFFICILE COLITIS [None]
